FAERS Safety Report 26122762 (Version 1)
Quarter: 2025Q4

REPORT INFORMATION
  Report Type: Report from Study
  Country: GB (occurrence: None)
  Receive Date: 20251204
  Receipt Date: 20251204
  Transmission Date: 20260117
  Serious: Yes (Other)
  Sender: UCB
  Company Number: GB-UCBSA-2025076834

PATIENT

DRUGS (1)
  1. CERTOLIZUMAB PEGOL [Suspect]
     Active Substance: CERTOLIZUMAB PEGOL
     Indication: Sacroiliitis
     Dosage: 200 MILLIGRAM, EV 2 WEEKS(QOW)

REACTIONS (6)
  - Fall [Unknown]
  - Epilepsy [Unknown]
  - Ear infection [Unknown]
  - Pain in jaw [Unknown]
  - Nasopharyngitis [Unknown]
  - Illness [Unknown]
